FAERS Safety Report 7298213-7 (Version None)
Quarter: 2011Q1

REPORT INFORMATION
  Report Type: 
  Country: None (occurrence: None)
  Receive Date: 20110214
  Receipt Date: 20110214
  Transmission Date: 20110831
  Serious: Yes (Life-Threatening)
  Sender: FDA-Public Use
  Company Number: None

PATIENT
  Age: 32 Year
  Sex: Female
  Weight: 74.8435 kg

DRUGS (1)
  1. ACCUTANE [Suspect]

REACTIONS (2)
  - DIARRHOEA HAEMORRHAGIC [None]
  - MUSCLE SPASMS [None]
